FAERS Safety Report 14837068 (Version 2)
Quarter: 2018Q2

REPORT INFORMATION
  Report Type: Spontaneous
  Country: CN (occurrence: CN)
  Receive Date: 20180502
  Receipt Date: 20180508
  Transmission Date: 20180711
  Serious: Yes (Death, Life-Threatening)
  Sender: FDA-Public Use
  Company Number: CN-ROCHE-2116684

PATIENT
  Sex: Male

DRUGS (3)
  1. PEMETREXED. [Suspect]
     Active Substance: PEMETREXED
     Indication: LUNG ADENOCARCINOMA
     Route: 065
  2. AVASTIN [Suspect]
     Active Substance: BEVACIZUMAB
     Indication: LUNG ADENOCARCINOMA
     Dosage: 1 CYCLE
     Route: 041
     Dates: start: 20170902
  3. AVASTIN [Suspect]
     Active Substance: BEVACIZUMAB
     Dosage: 2 CYCLE
     Route: 042
     Dates: start: 20170927

REACTIONS (2)
  - Upper gastrointestinal haemorrhage [Fatal]
  - Shock haemorrhagic [Recovering/Resolving]
